FAERS Safety Report 15202969 (Version 1)
Quarter: 2018Q3

REPORT INFORMATION
  Report Type: Spontaneous
  Country: KR (occurrence: KR)
  Receive Date: 20180726
  Receipt Date: 20180726
  Transmission Date: 20181010
  Serious: Yes (Hospitalization)
  Sender: FDA-Public Use
  Company Number: KR-AMGEN-KORSP2018099759

PATIENT
  Age: 4 Year
  Sex: Female

DRUGS (12)
  1. ETOPOSIDE. [Concomitant]
     Active Substance: ETOPOSIDE
     Dosage: UNK
     Dates: start: 20170710, end: 20170914
  2. CYCLOPHOSPHAMIDE. [Concomitant]
     Active Substance: CYCLOPHOSPHAMIDE
     Dosage: UNK
     Dates: start: 20170713, end: 20170906
  3. BLINCYTO [Suspect]
     Active Substance: BLINATUMOMAB
     Dosage: 12.3 MUG, UNK
     Route: 042
     Dates: start: 20170912
  4. EPIDOXORUBICINA [Concomitant]
     Active Substance: EPIRUBICIN
     Dosage: UNK
     Dates: start: 20170710, end: 20170914
  5. CISPLATIN. [Concomitant]
     Active Substance: CISPLATIN
     Dosage: UNK
     Dates: start: 20170710, end: 20170914
  6. TAXOTERE [Concomitant]
     Active Substance: DOCETAXEL
     Dosage: UNK
     Dates: start: 20170713, end: 20170906
  7. EPIRUBICIN [Concomitant]
     Active Substance: EPIRUBICIN
     Dosage: UNK
     Dates: start: 20170713, end: 20170906
  8. BLINCYTO [Suspect]
     Active Substance: BLINATUMOMAB
     Indication: B PRECURSOR TYPE ACUTE LEUKAEMIA
     Dosage: 4.1 MUG, UNK FOR 28 DAYS
     Route: 042
     Dates: start: 20170905
  9. CYTOXAN [Concomitant]
     Active Substance: CYCLOPHOSPHAMIDE
     Dosage: UNK
     Dates: start: 20170724, end: 20170906
  10. DEXA [Concomitant]
     Dosage: UNK
     Dates: start: 20170905
  11. ADRIAMYCIN [Concomitant]
     Active Substance: DOXORUBICIN HYDROCHLORIDE
     Dosage: UNK
     Dates: start: 20170724, end: 20170906
  12. FLUOROURACIL. [Concomitant]
     Active Substance: FLUOROURACIL
     Dosage: UNK
     Dates: start: 20170724, end: 20170906

REACTIONS (5)
  - Pyrexia [Recovered/Resolved]
  - Pollakiuria [Unknown]
  - Rash [Unknown]
  - Pain [Unknown]
  - Hypoaesthesia [Unknown]

NARRATIVE: CASE EVENT DATE: 201709
